FAERS Safety Report 18353774 (Version 1)
Quarter: 2020Q4

REPORT INFORMATION
  Report Type: Spontaneous
  Country: US (occurrence: US)
  Receive Date: 20201007
  Receipt Date: 20201007
  Transmission Date: 20210114
  Serious: Yes (Other)
  Sender: FDA-Public Use
  Company Number: US-APOTEX-2020AP019503

PATIENT
  Sex: Male

DRUGS (1)
  1. PAXIL [Suspect]
     Active Substance: PAROXETINE HYDROCHLORIDE
     Indication: PRODUCT USED FOR UNKNOWN INDICATION
     Dosage: UNK
     Route: 065

REACTIONS (9)
  - Anxiety [Unknown]
  - Mental disorder [Unknown]
  - Social avoidant behaviour [Unknown]
  - Bipolar disorder [Unknown]
  - Euphoric mood [Unknown]
  - Feeling abnormal [Unknown]
  - Psychotic disorder [Unknown]
  - Dysphonia [Unknown]
  - Social anxiety disorder [Unknown]
